FAERS Safety Report 16326640 (Version 4)
Quarter: 2021Q2

REPORT INFORMATION
  Report Type: Report from Study
  Country: US (occurrence: US)
  Receive Date: 20190517
  Receipt Date: 20210511
  Transmission Date: 20210716
  Serious: Yes (Hospitalization)
  Sender: FDA-Public Use
  Company Number: US-PFIZER INC-2019201011

PATIENT
  Age: 59 Year
  Sex: Male
  Weight: 67.7 kg

DRUGS (7)
  1. CYTARABINE. [Suspect]
     Active Substance: CYTARABINE
     Indication: ACUTE MYELOID LEUKAEMIA
     Dosage: 5580 MG, OVER 3 HOURS TWICE DAILY ON DAYS 1, 3, 5, CONSOLIDATION CYCLE 4
     Route: 042
     Dates: start: 20190419, end: 20190424
  2. DAUNORUBICIN [Suspect]
     Active Substance: DAUNORUBICIN
     Indication: ACUTE MYELOID LEUKAEMIA
     Dosage: 115 MG, DAILY BY CONTINUOUS INFUSION
     Route: 041
     Dates: start: 20181024, end: 20181026
  3. GLASDEGIB [Suspect]
     Active Substance: GLASDEGIB
     Indication: ACUTE MYELOID LEUKAEMIA
     Dosage: UNK, 1X/DAY CONTINUOUS
     Route: 048
     Dates: start: 20181024
  4. CYTARABINE. [Suspect]
     Active Substance: CYTARABINE
     Indication: ACUTE MYELOID LEUKAEMIA
     Dosage: 191 MG, DAILY BY CONTINUOUS INFUSION
     Route: 041
     Dates: start: 20181024, end: 20181030
  5. BENADRYL [Concomitant]
     Active Substance: DIPHENHYDRAMINE HYDROCHLORIDE
     Indication: PLATELET TRANSFUSION
     Dosage: 25 MG, INJECTABLE
  6. CYTARABINE. [Suspect]
     Active Substance: CYTARABINE
     Dosage: 5.58 G
     Route: 042
  7. OFIRMEV [Concomitant]
     Active Substance: ACETAMINOPHEN
     Dosage: IVPB, 1000 MG, UNK
     Route: 042

REACTIONS (3)
  - Hypoxia [Recovered/Resolved]
  - Febrile neutropenia [Recovered/Resolved with Sequelae]
  - Pneumonia [Recovered/Resolved]

NARRATIVE: CASE EVENT DATE: 20190507
